FAERS Safety Report 14527989 (Version 1)
Quarter: 2018Q1

REPORT INFORMATION
  Report Type: Spontaneous
  Country: US (occurrence: US)
  Receive Date: 20180213
  Receipt Date: 20180213
  Transmission Date: 20180509
  Serious: No
  Sender: FDA-Public Use
  Company Number: US-ASTRAZENECA-2018SE14415

PATIENT
  Age: 30554 Day
  Sex: Male
  Weight: 95.3 kg

DRUGS (1)
  1. SYMBICORT [Suspect]
     Active Substance: BUDESONIDE\FORMOTEROL FUMARATE DIHYDRATE
     Indication: NASOPHARYNGITIS
     Dosage: 160/4.5MCG INHALER, TWO PUFFS TWICE DAILY
     Route: 055
     Dates: start: 20180123, end: 20180127

REACTIONS (11)
  - Nausea [Unknown]
  - Therapy cessation [Unknown]
  - Off label use [Recovered/Resolved]
  - Cough [Unknown]
  - Fatigue [Unknown]
  - Chest discomfort [Unknown]
  - Back pain [Unknown]
  - Product use in unapproved indication [Recovered/Resolved]
  - Fall [Unknown]
  - Abdominal discomfort [Unknown]
  - Dizziness [Unknown]

NARRATIVE: CASE EVENT DATE: 20180123
